FAERS Safety Report 9147611 (Version 1)
Quarter: 2013Q1

REPORT INFORMATION
  Report Type: Spontaneous
  Country: US (occurrence: US)
  Receive Date: 20130307
  Receipt Date: 20130307
  Transmission Date: 20140127
  Serious: Yes (Hospitalization)
  Sender: FDA-Public Use
  Company Number: US-COVIDIEN/TYCO HEALTHCARE/MALLINCKRODT-T201301106

PATIENT
  Age: 59 Year
  Sex: Male

DRUGS (1)
  1. OPTIRAY [Suspect]
     Indication: PYELOGRAM RETROGRADE
     Dosage: UNK
     Route: 066

REACTIONS (4)
  - Renal failure acute [Recovered/Resolved]
  - Abdominal pain [Unknown]
  - Off label use [Recovered/Resolved]
  - Incorrect route of drug administration [Recovered/Resolved]
